FAERS Safety Report 10185138 (Version 1)
Quarter: 2014Q2

REPORT INFORMATION
  Report Type: Spontaneous
  Country: US (occurrence: US)
  Receive Date: 20140521
  Receipt Date: 20140521
  Transmission Date: 20141212
  Serious: Yes (Other)
  Sender: FDA-Public Use
  Company Number: US-ASTRAZENECA-2014SE33093

PATIENT
  Sex: Male

DRUGS (18)
  1. SEROQUEL XR [Suspect]
     Indication: DEPRESSION
     Route: 048
     Dates: start: 201404
  2. SEROQUEL XR [Suspect]
     Indication: AGITATION
     Route: 048
     Dates: start: 201404
  3. SEROQUEL XR [Suspect]
     Indication: ANXIETY
     Route: 048
     Dates: start: 201404
  4. SEROQUEL XR [Suspect]
     Indication: SLEEP DISORDER
     Route: 048
     Dates: start: 201404
  5. SEROQUEL XR [Suspect]
     Indication: DEPRESSION
     Route: 048
  6. SEROQUEL XR [Suspect]
     Indication: AGITATION
     Route: 048
  7. SEROQUEL XR [Suspect]
     Indication: ANXIETY
     Route: 048
  8. SEROQUEL XR [Suspect]
     Indication: SLEEP DISORDER
     Route: 048
  9. SEROQUEL XR [Suspect]
     Indication: DEPRESSION
     Route: 048
  10. SEROQUEL XR [Suspect]
     Indication: AGITATION
     Route: 048
  11. SEROQUEL XR [Suspect]
     Indication: ANXIETY
     Route: 048
  12. SEROQUEL XR [Suspect]
     Indication: SLEEP DISORDER
     Route: 048
  13. SEROQUEL XR [Suspect]
     Indication: DEPRESSION
     Route: 048
  14. SEROQUEL XR [Suspect]
     Indication: AGITATION
     Route: 048
  15. SEROQUEL XR [Suspect]
     Indication: ANXIETY
     Route: 048
  16. SEROQUEL XR [Suspect]
     Indication: SLEEP DISORDER
     Route: 048
  17. ANIDEPRESSANT [Concomitant]
  18. BENZO [Concomitant]

REACTIONS (5)
  - Loss of consciousness [Unknown]
  - Spinal fracture [Unknown]
  - Fall [Unknown]
  - Lethargy [Unknown]
  - Dysarthria [Unknown]
